FAERS Safety Report 9024703 (Version 1)
Quarter: 2013Q1

REPORT INFORMATION
  Report Type: Spontaneous
  Country: US (occurrence: US)
  Receive Date: 20130121
  Receipt Date: 20130121
  Transmission Date: 20140127
  Serious: Yes (Other)
  Sender: FDA-Public Use
  Company Number: US-BIOGENIDEC-2008BI002846

PATIENT
  Age: 61 Year
  Sex: Female
  Weight: 72 kg

DRUGS (7)
  1. AVONEX [Suspect]
     Indication: MULTIPLE SCLEROSIS
     Route: 030
     Dates: start: 19981116, end: 2003
  2. AVONEX [Suspect]
     Indication: MULTIPLE SCLEROSIS
     Route: 030
     Dates: start: 20080227
  3. AVONEX [Suspect]
     Indication: MULTIPLE SCLEROSIS
     Route: 030
     Dates: start: 2003, end: 20071107
  4. RHINOCORT [Concomitant]
     Indication: SINUSITIS
  5. LEXAPRO [Concomitant]
  6. UNKNOWN MEDICATIONS [Concomitant]
  7. UNKNOWN MEDICATIONS [Concomitant]

REACTIONS (17)
  - Retinal detachment [Recovered/Resolved]
  - Retinopathy proliferative [Unknown]
  - Retinal ischaemia [Unknown]
  - Uveitis [Not Recovered/Not Resolved]
  - Lipoma [Recovered/Resolved]
  - Blindness unilateral [Not Recovered/Not Resolved]
  - Chronic obstructive pulmonary disease [Not Recovered/Not Resolved]
  - Nasopharyngitis [Not Recovered/Not Resolved]
  - Asthma [Not Recovered/Not Resolved]
  - Influenza [Recovered/Resolved]
  - Sleep disorder [Not Recovered/Not Resolved]
  - Memory impairment [Not Recovered/Not Resolved]
  - Eye inflammation [Not Recovered/Not Resolved]
  - Ear infection [Not Recovered/Not Resolved]
  - Cataract [Not Recovered/Not Resolved]
  - Headache [Not Recovered/Not Resolved]
  - Pain [Not Recovered/Not Resolved]
